FAERS Safety Report 5046191-3 (Version None)
Quarter: 2006Q2

REPORT INFORMATION
  Report Type: 
  Country: None (occurrence: None)
  Receive Date: 20060629
  Receipt Date: 20060619
  Transmission Date: 20061013
  Serious: Yes (Other)
  Sender: FDA-Public Use
  Company Number: USA-2006-0024233

PATIENT
  Age: 51 Year
  Sex: Male
  Weight: 90.7 kg

DRUGS (6)
  1. OXYCONTIN [Suspect]
     Indication: PAIN
     Dosage: 80 MG, BID, ORAL
     Route: 048
     Dates: start: 20051001
  2. CELEBREX [Concomitant]
  3. IBUPROFEN [Concomitant]
  4. INSULIN [Concomitant]
  5. DIGOXIN [Concomitant]
  6. PREVACID [Concomitant]

REACTIONS (4)
  - DILATATION ATRIAL [None]
  - DRUG TOLERANCE [None]
  - INADEQUATE ANALGESIA [None]
  - PERIPHERAL NERVE INJURY [None]
